FAERS Safety Report 7676093-5 (Version None)
Quarter: 2011Q3

REPORT INFORMATION
  Report Type: 
  Country: None (occurrence: None)
  Receive Date: 20110811
  Receipt Date: 20110803
  Transmission Date: 20111222
  Serious: Yes (Hospitalization)
  Sender: FDA-Public Use
  Company Number: PHHY2011JP70550

PATIENT
  Age: 68 Year
  Sex: Male

DRUGS (4)
  1. LANSOPRAZOLE [Suspect]
     Dosage: UNK UKN, UNK
     Route: 048
  2. WARFARIN POTASSIUM [Concomitant]
     Dosage: UNK UKN, UNK
     Route: 048
  3. CYCLOSPORINE [Suspect]
     Indication: NEPHROTIC SYNDROME
     Dosage: UNK UKN, UNK
     Route: 048
  4. PREDNISOLONE [Concomitant]
     Dosage: UNK UKN, UNK
     Route: 048

REACTIONS (1)
  - COLITIS MICROSCOPIC [None]
